FAERS Safety Report 9288968 (Version 1)
Quarter: 2013Q2

REPORT INFORMATION
  Report Type: Spontaneous
  Country: US (occurrence: US)
  Receive Date: 20130514
  Receipt Date: 20130514
  Transmission Date: 20140414
  Serious: No
  Sender: FDA-Public Use
  Company Number: US-ASTRAZENECA-2013SE31676

PATIENT
  Sex: Female

DRUGS (3)
  1. SYMBICORT PMDI [Suspect]
     Indication: ASTHMA
     Dosage: 80 MCG, 2 PUFFS DAILY
     Route: 055
  2. PULMICORT TURBUHALER [Suspect]
     Indication: ASTHMA
     Dosage: 200MCG, 2 PUFFS DAILY
     Route: 055
  3. FLUTICASONE [Concomitant]
     Indication: RHINITIS ALLERGIC
     Route: 045

REACTIONS (3)
  - Asthma [Unknown]
  - Intentional drug misuse [Unknown]
  - Off label use [Unknown]
